FAERS Safety Report 4366252-1 (Version None)
Quarter: 2004Q2

REPORT INFORMATION
  Report Type: 
  Country: None (occurrence: None)
  Receive Date: 20040526
  Receipt Date: 20040526
  Transmission Date: 20050107
  Serious: Yes (Hospitalization)
  Sender: FDA-Public Use
  Company Number: None

PATIENT
  Sex: Female
  Weight: 59.3 kg

DRUGS (12)
  1. ANAKINRA [Suspect]
     Indication: RHEUMATOID ARTHRITIS
     Dosage: 100 MG DAILY SUBCUTANEOUS
     Route: 058
     Dates: start: 20040226, end: 20040506
  2. METHOTREXATE [Concomitant]
  3. PREDNISONE [Concomitant]
  4. PLAVIX [Concomitant]
  5. ASPIRIN [Concomitant]
  6. NAPROXEN [Concomitant]
  7. FERROUS SULFATE TAB [Concomitant]
  8. NIFEDIPAINE ER [Concomitant]
  9. CALCIUM [Concomitant]
  10. MULTI-VITAMIN [Concomitant]
  11. FOLIC ACID [Concomitant]
  12. FOSAMAX [Concomitant]

REACTIONS (5)
  - ANAPHYLACTIC REACTION [None]
  - BLOOD GLUCOSE INCREASED [None]
  - INJECTION SITE ERYTHEMA [None]
  - INJECTION SITE PRURITUS [None]
  - LICHEN PLANUS [None]
